FAERS Safety Report 5519307-X (Version None)
Quarter: 2007Q4

REPORT INFORMATION
  Report Type: 
  Country: None (occurrence: None)
  Receive Date: 20071114
  Receipt Date: 20071102
  Transmission Date: 20080405
  Serious: Yes (Congenital Anomaly)
  Sender: FDA-Public Use
  Company Number: 2007-166932-NL

PATIENT
  Sex: Male

DRUGS (1)
  1. ETONOGESTREL (BATCH #: 314704/359127) [Suspect]
     Dosage: DF TRANSPLACENTAL
     Route: 064
     Dates: start: 20020416, end: 20020919

REACTIONS (3)
  - CAESAREAN SECTION [None]
  - DRUG EXPOSURE DURING PREGNANCY [None]
  - HYDROCELE [None]
